FAERS Safety Report 10662181 (Version 3)
Quarter: 2015Q2

REPORT INFORMATION
  Report Type: Spontaneous
  Country: US (occurrence: US)
  Receive Date: 20141218
  Receipt Date: 20150408
  Transmission Date: 20150821
  Serious: Yes (Disabling, Other)
  Sender: FDA-Public Use
  Company Number: US-009507513-1205USA01869

PATIENT
  Sex: Male
  Weight: 60.32 kg

DRUGS (5)
  1. PROPECIA [Suspect]
     Active Substance: FINASTERIDE
     Indication: ANDROGENETIC ALOPECIA
     Dosage: 1 MG, QD
     Route: 048
     Dates: start: 19981102, end: 2009
  2. CEPHALEXIN. [Concomitant]
     Active Substance: CEPHALEXIN
     Indication: PRODUCT USED FOR UNKNOWN INDICATION
     Dosage: UNK
     Dates: start: 199705, end: 200506
  3. FINASTERIDE. [Suspect]
     Active Substance: FINASTERIDE
     Indication: ALOPECIA
     Dosage: 1.25 MG
     Dates: start: 20091106
  4. PROPECIA [Suspect]
     Active Substance: FINASTERIDE
     Dosage: 5 MG, QD
     Route: 048
     Dates: start: 20091106
  5. PROSCAR [Suspect]
     Active Substance: FINASTERIDE
     Indication: PRODUCT USED FOR UNKNOWN INDICATION
     Dosage: 5 MG, UNK
     Route: 048
     Dates: start: 20100311

REACTIONS (26)
  - Epididymitis [Unknown]
  - Neuropathy peripheral [Unknown]
  - Overdose [Unknown]
  - Hypertension [Unknown]
  - Major depression [Recovering/Resolving]
  - Erectile dysfunction [Not Recovered/Not Resolved]
  - Ejaculation disorder [Not Recovered/Not Resolved]
  - Sexual dysfunction [Not Recovered/Not Resolved]
  - Depression [Not Recovered/Not Resolved]
  - Disturbance in attention [Not Recovered/Not Resolved]
  - Orchitis [Unknown]
  - Suicidal ideation [Not Recovered/Not Resolved]
  - Pharyngitis streptococcal [Unknown]
  - Diarrhoea [Unknown]
  - Libido decreased [Not Recovered/Not Resolved]
  - Cardiac flutter [Unknown]
  - Anxiety [Not Recovered/Not Resolved]
  - Road traffic accident [Unknown]
  - Abdominal pain [Unknown]
  - Bronchitis [Unknown]
  - Cognitive disorder [Not Recovered/Not Resolved]
  - Ejaculation failure [Not Recovered/Not Resolved]
  - Sexual dysfunction [Not Recovered/Not Resolved]
  - Pain [Unknown]
  - Overdose [Unknown]
  - Sinusitis [Unknown]

NARRATIVE: CASE EVENT DATE: 19981116
